FAERS Safety Report 9617765 (Version 1)
Quarter: 2013Q4

REPORT INFORMATION
  Report Type: Spontaneous
  Country: IT (occurrence: IT)
  Receive Date: 20131011
  Receipt Date: 20131011
  Transmission Date: 20140711
  Serious: Yes (Other)
  Sender: FDA-Public Use
  Company Number: IT-ELI_LILLY_AND_COMPANY-IT201310000837

PATIENT
  Age: 66 Year
  Sex: Female

DRUGS (11)
  1. CYMBALTA [Suspect]
     Dosage: 60 MG, BID
     Dates: end: 20130927
  2. CYMBALTA [Interacting]
     Dosage: 60 MG, QD
     Dates: start: 20130927, end: 20130929
  3. SEROQUEL [Interacting]
     Dosage: 25 MG, UNKNOWN
  4. SEROQUEL [Interacting]
     Dosage: 125 MG, UNKNOWN
  5. TOPAMAX [Interacting]
     Dosage: 25 MG, UNKNOWN
  6. TOPAMAX [Interacting]
     Dosage: 37.5 MG, QD
  7. EBIXA [Interacting]
     Dosage: 20 MG, QD
  8. EXELON [Interacting]
     Dosage: 3 MG, UNKNOWN
  9. EXELON [Interacting]
     Dosage: 4.5 MG, UNKNOWN
  10. CARDIOASPIRINA [Interacting]
  11. TRIATEC [Interacting]
     Indication: HYPERTENSION
     Dosage: 1 DF, PRN

REACTIONS (14)
  - Convulsion [Unknown]
  - Partial seizures [Unknown]
  - Dementia Alzheimer^s type [Unknown]
  - Tonic convulsion [Unknown]
  - Psychomotor hyperactivity [Unknown]
  - Anxiety [Unknown]
  - Agnosia [Unknown]
  - Agitation [Unknown]
  - Hallucination [Unknown]
  - Psychotic behaviour [Unknown]
  - Clonus [Unknown]
  - Confusional state [Unknown]
  - Dysstasia [Unknown]
  - Drug interaction [Unknown]
